FAERS Safety Report 4423692-X (Version None)
Quarter: 2004Q3

REPORT INFORMATION
  Report Type: 
  Country: None (occurrence: None)
  Receive Date: 20040805
  Receipt Date: 20040729
  Transmission Date: 20050211
  Serious: Yes (Death)
  Sender: FDA-Public Use
  Company Number: 2004046701

PATIENT
  Age: 44 Year
  Sex: Male

DRUGS (7)
  1. ZIPRASIDONE (CAPS) (ZIPRASIDONE) [Suspect]
     Indication: ABNORMAL BEHAVIOUR
     Dosage: 160 MG (80 MG, 2 IN 1 D) ORAL
     Route: 048
     Dates: start: 20040601, end: 20040701
  2. GABAPENTIN [Suspect]
     Indication: EPILEPSY
     Dosage: 1800 MG (600 MG, 3 IN 1 D), ORAL
     Route: 048
     Dates: start: 20040601, end: 20040701
  3. LAMOTRIGINE [Suspect]
     Indication: EPILEPSY
     Dosage: 300 MG, ORAL
     Route: 048
     Dates: end: 20040701
  4. RANITIDINE HYDROCHLORIDE [Suspect]
     Indication: ILL-DEFINED DISORDER
     Dosage: ORAL
     Route: 048
     Dates: end: 20040701
  5. MIDAZOLAM HCL [Suspect]
     Indication: ILL-DEFINED DISORDER
     Dosage: ORAL
     Route: 048
     Dates: end: 20040701
  6. DEXCHLORPHENIRAMINE MALEATE (DEXCHLORPHENIRAMINE MALEATE) [Suspect]
     Indication: SCRATCH
     Dates: start: 20040707, end: 20040701
  7. OLANZAPINE [Concomitant]

REACTIONS (5)
  - DIZZINESS [None]
  - PRURITUS [None]
  - SCRATCH [None]
  - SKIN LESION [None]
  - TORSADE DE POINTES [None]
